FAERS Safety Report 13849932 (Version 1)
Quarter: 2017Q3

REPORT INFORMATION
  Report Type: Report from Study
  Country: US (occurrence: US)
  Receive Date: 20170809
  Receipt Date: 20170809
  Transmission Date: 20171127
  Serious: Yes (Other)
  Sender: FDA-Public Use
  Company Number: US-TESARO, INC-US-2017TSO02181

PATIENT

DRUGS (1)
  1. ZEJULA [Suspect]
     Active Substance: NIRAPARIB
     Indication: OVARIAN CANCER
     Dosage: 300 MG, QD
     Route: 048
     Dates: start: 20170529, end: 2017

REACTIONS (5)
  - Dehydration [Unknown]
  - Thrombosis [Unknown]
  - Tumour marker increased [Unknown]
  - Constipation [Unknown]
  - Red blood cell count decreased [Unknown]
